FAERS Safety Report 6615690-2 (Version None)
Quarter: 2010Q1

REPORT INFORMATION
  Report Type: 
  Country: None (occurrence: None)
  Receive Date: 20100305
  Receipt Date: 20100222
  Transmission Date: 20100710
  Serious: Yes (Hospitalization)
  Sender: FDA-Public Use
  Company Number: US-ROCHE-688378

PATIENT
  Age: 52 Year

DRUGS (5)
  1. TRASTUZUMAB [Suspect]
     Indication: BREAST CANCER
     Dosage: DATE OF MOST RECENT DOSE 8 JULY 2009.
     Route: 065
  2. BEVACIZUMAB [Suspect]
     Indication: BREAST CANCER
     Dosage: DATE OF MOST RECENT DOSE 13 APRIL 2009
     Route: 065
  3. EPIRUBICIN [Suspect]
     Indication: BREAST CANCER
     Dosage: DATE OF MOST RECENT DOSE 26 JANUARY 2009
     Route: 065
  4. CYCLOPHOSPHAMIDE [Suspect]
     Indication: BREAST CANCER
     Dosage: DATE OF MOST RECENT DOSE 26 JANUARY 2009
     Route: 065
  5. DOCETAXEL [Suspect]
     Indication: BREAST CANCER
     Dosage: DATE OF MOST RECENT DOSE 04 MAY 2009
     Route: 065

REACTIONS (2)
  - WOUND DEHISCENCE [None]
  - WOUND INFECTION [None]
